FAERS Safety Report 8843894 (Version 2)
Quarter: 2012Q4

REPORT INFORMATION
  Report Type: 
  Country: BR (occurrence: BR)
  Receive Date: 20121016
  Receipt Date: 20121129
  Transmission Date: 20130627
  Serious: Yes (Hospitalization)
  Sender: FDA-Public Use
  Company Number: BR-ASTELLAS-2012US010146

PATIENT
  Age: 7 Year
  Sex: Female

DRUGS (5)
  1. PROGRAF [Suspect]
     Indication: RENAL TRANSPLANT
     Dosage: 4 mg, bid
     Route: 048
     Dates: start: 20090914, end: 20100728
  2. BASILIXIMAB [Concomitant]
     Indication: RENAL TRANSPLANT
     Dosage: 1 DF, Total Dose
     Route: 065
     Dates: start: 20090914
  3. BASILIXIMAB [Concomitant]
     Dosage: 1 DF, Total Dose
     Route: 065
     Dates: start: 20090918
  4. MYCOPHENOLATE SODIUM [Concomitant]
     Indication: RENAL TRANSPLANT
     Dosage: 180 mg, bid
     Route: 065
     Dates: start: 200909
  5. PREDNISONE [Concomitant]
     Indication: RENAL TRANSPLANT
     Dosage: 25 mg, UID/QD
     Route: 065
     Dates: start: 200909

REACTIONS (1)
  - Post transplant distal limb syndrome [Recovered/Resolved]
